FAERS Safety Report 9421087 (Version 1)
Quarter: 2013Q3

REPORT INFORMATION
  Report Type: Spontaneous
  Country: US (occurrence: US)
  Receive Date: 20130725
  Receipt Date: 20130725
  Transmission Date: 20140515
  Serious: Yes (Other)
  Sender: FDA-Public Use
  Company Number: CHPA2013US011474

PATIENT
  Age: 55 Year
  Sex: Female

DRUGS (3)
  1. EXCEDRIN PM [Suspect]
     Indication: MIGRAINE
     Dosage: UNK, UNK
     Route: 048
     Dates: start: 2010
  2. EXCEDRIN EXTRA STRENGTH [Concomitant]
     Indication: MIGRAINE
     Dosage: UNK, UNK
  3. EXCEDRIN MIGRAINE [Concomitant]
     Indication: MIGRAINE
     Dosage: UNK, UNK

REACTIONS (5)
  - Abasia [Unknown]
  - Migraine [Unknown]
  - Rebound effect [Unknown]
  - Dizziness [Unknown]
  - Off label use [Unknown]
